FAERS Safety Report 4633820-9 (Version None)
Quarter: 2005Q2

REPORT INFORMATION
  Report Type: 
  Country: None (occurrence: None)
  Receive Date: 20050411
  Receipt Date: 20050405
  Transmission Date: 20051028
  Serious: Yes (Other)
  Sender: FDA-Public Use
  Company Number: CHPA2005US01055

PATIENT
  Age: 49 Year
  Sex: Male
  Weight: 95.2 kg

DRUGS (2)
  1. MAALOX MS TOTAL STOMACH RELIEF STRAWBERRY (NCH) (BISMUTH SUBSALICYLATE [Suspect]
     Indication: NAUSEA
     Dosage: 1/2 BOTTE IN 10 HOURS, ORAL
     Route: 048
     Dates: start: 20050326, end: 20050326
  2. PRILOSEC [Concomitant]

REACTIONS (5)
  - ABDOMINAL DISCOMFORT [None]
  - FAECES DISCOLOURED [None]
  - NAUSEA [None]
  - OVERDOSE [None]
  - SPLENOMEGALY [None]
